FAERS Safety Report 9518938 (Version 3)
Quarter: 2014Q1

REPORT INFORMATION
  Report Type: Spontaneous
  Country: US (occurrence: US)
  Receive Date: 20130912
  Receipt Date: 20140123
  Transmission Date: 20141002
  Serious: No
  Sender: FDA-Public Use
  Company Number: US-PFIZER INC-2013260309

PATIENT
  Age: 46 Year
  Sex: Female
  Weight: 61.68 kg

DRUGS (3)
  1. XELJANZ [Suspect]
     Indication: RHEUMATOID ARTHRITIS
     Dosage: 5 MG, 2X/DAY
     Route: 048
     Dates: start: 20130807
  2. DICLOFENAC [Concomitant]
     Indication: ARTHRITIS
     Dosage: 75 MG, 1X/DAY
  3. METHOTREXATE [Concomitant]
     Indication: ARTHRITIS
     Dosage: 8 DF, WEEKLY/ 20 MG, DAILY

REACTIONS (4)
  - Constipation [Not Recovered/Not Resolved]
  - Infrequent bowel movements [Not Recovered/Not Resolved]
  - Nausea [Not Recovered/Not Resolved]
  - Nasopharyngitis [Unknown]
